FAERS Safety Report 14251774 (Version 1)
Quarter: 2017Q4

REPORT INFORMATION
  Report Type: Spontaneous
  Country: CA (occurrence: CA)
  Receive Date: 20171205
  Receipt Date: 20171205
  Transmission Date: 20180321
  Serious: Yes (Hospitalization)
  Sender: FDA-Public Use
  Company Number: CA-ACELLA PHARMACEUTICALS, LLC-2036717

PATIENT
  Age: 70 Year
  Sex: Male

DRUGS (1)
  1. PHENYTOIN. [Suspect]
     Active Substance: PHENYTOIN
     Route: 048

REACTIONS (3)
  - Asthenia [None]
  - Dyspnoea [None]
  - Deep vein thrombosis [None]
